FAERS Safety Report 10678761 (Version 1)
Quarter: 2014Q4

REPORT INFORMATION
  Report Type: Report from Study
  Country: GB (occurrence: GB)
  Receive Date: 20141229
  Receipt Date: 20141229
  Transmission Date: 20150529
  Serious: Yes (Other)
  Sender: FDA-Public Use
  Company Number: GB-JNJFOC-20141210297

PATIENT
  Age: 55 Year
  Sex: Female
  Weight: 83 kg

DRUGS (2)
  1. AMLODIPINE [Concomitant]
     Active Substance: AMLODIPINE BESYLATE
     Route: 065
     Dates: start: 20010101
  2. USTEKINUMAB [Suspect]
     Active Substance: USTEKINUMAB
     Indication: PSORIASIS
     Route: 058
     Dates: start: 20120323

REACTIONS (1)
  - Malignant melanoma in situ [Recovered/Resolved]

NARRATIVE: CASE EVENT DATE: 20140815
